FAERS Safety Report 7495056-6 (Version None)
Quarter: 2011Q2

REPORT INFORMATION
  Report Type: 
  Country: None (occurrence: None)
  Receive Date: 20110520
  Receipt Date: 20110516
  Transmission Date: 20111010
  Serious: Yes (Hospitalization)
  Sender: FDA-Public Use
  Company Number: IT-GENENTECH-319056

PATIENT
  Sex: Male

DRUGS (7)
  1. RITUXAN [Suspect]
     Dosage: UNK
     Route: 065
     Dates: start: 20101129, end: 20110401
  2. SELEPARINA [Concomitant]
     Indication: PRODUCT USED FOR UNKNOWN INDICATION
     Dosage: 5700 IU, UNK
     Route: 058
     Dates: start: 20091112, end: 20101111
  3. LASIX [Concomitant]
     Indication: PRODUCT USED FOR UNKNOWN INDICATION
     Dosage: 25 MG, UNK
     Route: 048
     Dates: start: 20091112, end: 20101111
  4. RITUXAN [Suspect]
     Indication: NON-HODGKIN'S LYMPHOMA
     Dosage: 700 MG, UNKNOWN
     Route: 042
     Dates: start: 20091113, end: 20101111
  5. LYRICA [Concomitant]
     Indication: PRODUCT USED FOR UNKNOWN INDICATION
     Dosage: 600 MG, UNK
     Route: 048
     Dates: start: 20100621, end: 20101111
  6. VALPRESSION [Concomitant]
     Indication: PRODUCT USED FOR UNKNOWN INDICATION
     Dosage: 40 MG, UNK
     Route: 048
     Dates: start: 20100312, end: 20101111
  7. CARVEDILOL [Concomitant]
     Indication: PRODUCT USED FOR UNKNOWN INDICATION
     Dosage: 6.25 MG, UNK
     Route: 048
     Dates: start: 20100312, end: 20101111

REACTIONS (4)
  - METABOLIC ACIDOSIS [None]
  - PLEURAL EFFUSION [None]
  - DYSPNOEA [None]
  - RENAL FAILURE ACUTE [None]
